FAERS Safety Report 5595653-9 (Version None)
Quarter: 2008Q1

REPORT INFORMATION
  Report Type: 
  Country: None (occurrence: None)
  Receive Date: 20080118
  Receipt Date: 20080107
  Transmission Date: 20080703
  Serious: Yes (Death)
  Sender: FDA-Public Use
  Company Number: US-WYE-H02059908

PATIENT
  Age: 61 Year
  Sex: Male

DRUGS (3)
  1. AMIODARONE [Suspect]
     Dosage: UNSPECIFIED
  2. METOPROLOL TARTRATE [Suspect]
     Dosage: UNSPECIFIED
  3. AMLODIPINE [Suspect]
     Dosage: UNSPECIFIED

REACTIONS (2)
  - ACCIDENTAL OVERDOSE [None]
  - MEDICATION ERROR [None]
